FAERS Safety Report 7513701-3 (Version None)
Quarter: 2011Q2

REPORT INFORMATION
  Report Type: 
  Country: None (occurrence: None)
  Receive Date: 20110531
  Receipt Date: 20110524
  Transmission Date: 20111010
  Serious: Yes (Other)
  Sender: FDA-Public Use
  Company Number: US-US-EMD SERONO, INC.-7048138

PATIENT
  Sex: Female

DRUGS (1)
  1. REBIF [Suspect]
     Indication: MULTIPLE SCLEROSIS
     Route: 058
     Dates: start: 20070129

REACTIONS (7)
  - INTERVERTEBRAL DISC DISORDER [None]
  - INJECTION SITE ERYTHEMA [None]
  - BACK INJURY [None]
  - FALL [None]
  - MUSCULAR WEAKNESS [None]
  - ARTHRALGIA [None]
  - PAIN IN EXTREMITY [None]
